FAERS Safety Report 23041779 (Version 3)
Quarter: 2023Q4

REPORT INFORMATION
  Report Type: Report from Study
  Country: US (occurrence: US)
  Receive Date: 20231007
  Receipt Date: 20231013
  Transmission Date: 20240109
  Serious: No
  Sender: FDA-Public Use
  Company Number: US-002147023-NVSC2023US215268

PATIENT
  Age: 63 Year
  Sex: Female

DRUGS (2)
  1. KESIMPTA [Suspect]
     Active Substance: OFATUMUMAB
     Indication: Product used for unknown indication
     Dosage: 20 MG, Q3W, (ONCE EVERY 3 WK)
     Route: 065
     Dates: start: 20231004
  2. KESIMPTA [Suspect]
     Active Substance: OFATUMUMAB
     Dosage: 20 MG, QW
     Route: 058

REACTIONS (1)
  - Injection site extravasation [Unknown]

NARRATIVE: CASE EVENT DATE: 20231004
